FAERS Safety Report 5586550-3 (Version None)
Quarter: 2008Q1

REPORT INFORMATION
  Report Type: 
  Country: None (occurrence: None)
  Receive Date: 20080110
  Receipt Date: 20070107
  Transmission Date: 20080703
  Serious: Yes (Death, Hospitalization)
  Sender: FDA-Public Use
  Company Number: US-ASTRAZENECA-2008UW00447

PATIENT
  Age: 1010 Month
  Sex: Female
  Weight: 49 kg

DRUGS (4)
  1. FASLODEX [Suspect]
     Indication: BREAST CANCER
     Dosage: TOTAL DOSE ADMINISTERED THIS COURSE 750 MG
     Dates: start: 20060919
  2. FASLODEX [Suspect]
     Dates: end: 20061002
  3. ARIMIDEX [Suspect]
     Indication: BREAST CANCER
     Dosage: TOTAL DOSE ADMINISTERED THIS COURSE 22 MG
     Route: 048
     Dates: start: 20060919
  4. HEPARIN [Concomitant]
     Dates: end: 20061010

REACTIONS (15)
  - ABDOMINAL PAIN [None]
  - AGITATION [None]
  - ANOREXIA [None]
  - CONFUSIONAL STATE [None]
  - DEPRESSION [None]
  - HYPERGLYCAEMIA [None]
  - HYPOKALAEMIA [None]
  - ILEUS [None]
  - JUGULAR VEIN THROMBOSIS [None]
  - LARGE INTESTINE PERFORATION [None]
  - PLATELET COUNT DECREASED [None]
  - PNEUMOPERITONEUM [None]
  - PULMONARY EMBOLISM [None]
  - RECTAL ABSCESS [None]
  - URINARY TRACT INFECTION [None]
